FAERS Safety Report 6297222-4 (Version None)
Quarter: 2009Q3

REPORT INFORMATION
  Report Type: 
  Country: None (occurrence: None)
  Receive Date: 20090805
  Receipt Date: 20071219
  Transmission Date: 20100115
  Serious: Yes (Other)
  Sender: FDA-Public Use
  Company Number: US-ASTRAZENECA-2007UW13872

PATIENT
  Age: 21578 Day
  Sex: Male
  Weight: 92.5 kg

DRUGS (12)
  1. SEROQUEL [Suspect]
     Indication: SLEEP DISORDER
     Dosage: 25 - 200 MG
     Route: 048
     Dates: start: 20020515
  2. SEROQUEL [Suspect]
     Route: 048
     Dates: start: 20041001, end: 20060101
  3. GEMFIBROZIL [Concomitant]
     Route: 048
     Dates: start: 20060821
  4. CELEXA [Concomitant]
     Dosage: 20 - 40 MG
     Route: 048
     Dates: start: 20050812
  5. THYROID TAB [Concomitant]
     Route: 048
     Dates: start: 20060821
  6. KLONOPIN [Concomitant]
     Route: 048
     Dates: start: 20011210
  7. GLYBURIDE [Concomitant]
     Dosage: 5 - 20 MG
     Route: 048
     Dates: start: 20060821
  8. LAMICTAL [Concomitant]
     Dosage: 25 - 200 MG
     Route: 048
     Dates: start: 20050208
  9. XANAX [Concomitant]
     Route: 048
     Dates: start: 20011210
  10. PAXIL [Concomitant]
     Route: 048
     Dates: start: 19941101
  11. NORVIR [Concomitant]
     Dates: start: 20060821
  12. EPIVIR [Concomitant]
     Dates: start: 20060821

REACTIONS (9)
  - DIABETES MELLITUS [None]
  - DIABETES MELLITUS INADEQUATE CONTROL [None]
  - DIABETIC KETOACIDOSIS [None]
  - MICROALBUMINURIA [None]
  - MIXED HYPERLIPIDAEMIA [None]
  - NEUROPATHY PERIPHERAL [None]
  - PANCREATITIS ACUTE [None]
  - TYPE 1 DIABETES MELLITUS [None]
  - TYPE 2 DIABETES MELLITUS [None]
